FAERS Safety Report 9165070 (Version 3)
Quarter: 2013Q2

REPORT INFORMATION
  Report Type: Spontaneous
  Country: US (occurrence: US)
  Receive Date: 20130315
  Receipt Date: 20130424
  Transmission Date: 20140414
  Serious: Yes (Hospitalization)
  Sender: FDA-Public Use
  Company Number: US-B.I. PHARMACEUTICALS,INC./RIDGEFIELD-2012-BI-01059BP

PATIENT
  Age: 71 Year
  Sex: Female
  Weight: 79.38 kg

DRUGS (7)
  1. PRADAXA [Suspect]
     Indication: ANTICOAGULANT THERAPY
     Dosage: 300 MG
     Route: 048
     Dates: start: 20110217, end: 20120401
  2. ATORVASTATIN CALCIUM [Concomitant]
     Dosage: 10 MG
     Route: 048
  3. ALLEGRA [Concomitant]
     Dosage: 180 MG
     Route: 048
  4. RECLAST [Concomitant]
  5. PROPAFENONE HCL [Concomitant]
     Dosage: 450 MG
     Route: 048
  6. AMINO ACID [Concomitant]
  7. CO-Q-10 [Concomitant]

REACTIONS (2)
  - Subdural haematoma [Unknown]
  - Haematochezia [Recovered/Resolved]
